FAERS Safety Report 6268367-X (Version None)
Quarter: 2009Q3

REPORT INFORMATION
  Report Type: 
  Country: None (occurrence: None)
  Receive Date: 20090713
  Receipt Date: 20090713
  Transmission Date: 20100115
  Serious: Yes (Hospitalization)
  Sender: FDA-Public Use
  Company Number: None

PATIENT
  Sex: Female
  Weight: 61.6892 kg

DRUGS (5)
  1. IRINOTECAN 100 MG BEDFORD [Suspect]
     Indication: COLON CANCER
     Dosage: 640 MG Q21D IV BOLUS
     Route: 040
     Dates: start: 20090302, end: 20090323
  2. ATROPINE [Concomitant]
  3. HEPARIN [Concomitant]
  4. PALONOSETRON [Concomitant]
  5. DEXAMETHASONE [Concomitant]

REACTIONS (5)
  - CHILLS [None]
  - DIARRHOEA [None]
  - DRUG INTOLERANCE [None]
  - NAUSEA [None]
  - VOMITING [None]
